FAERS Safety Report 4638212-4 (Version None)
Quarter: 2005Q2

REPORT INFORMATION
  Report Type: 
  Country: None (occurrence: None)
  Receive Date: 20050415
  Receipt Date: 20050407
  Transmission Date: 20051028
  Serious: Yes (Other)
  Sender: FDA-Public Use
  Company Number: 2005-04-0436

PATIENT
  Sex: Female

DRUGS (5)
  1. RIBAVIRIN [Suspect]
     Indication: HEPATITIS C
     Dosage: 1200 MG QD ORAL
     Route: 048
     Dates: start: 20041101, end: 20050407
  2. PEGASYS [Suspect]
     Indication: HEPATITIS C
     Dosage: 180 MCG QWK
     Dates: start: 20041101, end: 20050407
  3. LEVOXYL [Concomitant]
  4. CELEBREX [Concomitant]
  5. AMILORIDE [Concomitant]

REACTIONS (3)
  - CATARACT [None]
  - EYELID MARGIN CRUSTING [None]
  - VISUAL ACUITY REDUCED [None]
